FAERS Safety Report 9270606 (Version 2)
Quarter: 2013Q4

REPORT INFORMATION
  Report Type: Spontaneous
  Country: GB (occurrence: GB)
  Receive Date: 20130505
  Receipt Date: 20131015
  Transmission Date: 20140711
  Serious: Yes (Disabling, Other)
  Sender: FDA-Public Use
  Company Number: GB-B.I. PHARMACEUTICALS,INC./RIDGEFIELD-2013-UK-00987UK

PATIENT
  Age: 78 Year
  Sex: Male
  Weight: 87 kg

DRUGS (6)
  1. PRADAXA [Suspect]
     Dosage: 150 MG
     Dates: start: 20130107, end: 20130418
  2. PRADAXA [Suspect]
     Dosage: 110 MG
  3. BETAMETHASONE VALERATE [Concomitant]
     Dates: start: 20130418
  4. CHLORPHENAMINE [Concomitant]
     Dates: start: 20130404, end: 20130414
  5. HYDROXYZINE [Concomitant]
     Dates: start: 20130415
  6. CO-PHENOTROPE [Concomitant]
     Dates: start: 20130418

REACTIONS (4)
  - Diarrhoea [Recovered/Resolved]
  - Faecal incontinence [Recovered/Resolved]
  - Gastrointestinal haemorrhage [Recovered/Resolved]
  - Rectal haemorrhage [Recovered/Resolved]
